FAERS Safety Report 7458571-7 (Version None)
Quarter: 2011Q2

REPORT INFORMATION
  Report Type: 
  Country: None (occurrence: None)
  Receive Date: 20110504
  Receipt Date: 20110421
  Transmission Date: 20111010
  Serious: Yes (Hospitalization)
  Sender: FDA-Public Use
  Company Number: CA-MEDIMMUNE-MEDI-0012719

PATIENT
  Age: 53 Day
  Sex: Female
  Weight: 3.632 kg

DRUGS (1)
  1. SYNAGIS [Suspect]
     Route: 030
     Dates: start: 20100101, end: 20100101

REACTIONS (7)
  - TACHYPNOEA [None]
  - CYANOSIS [None]
  - IRRITABILITY [None]
  - DIARRHOEA [None]
  - FEEDING DISORDER NEONATAL [None]
  - CRYING [None]
  - VOMITING [None]
